FAERS Safety Report 21345366 (Version 1)
Quarter: 2022Q3

REPORT INFORMATION
  Report Type: Spontaneous
  Country: US (occurrence: US)
  Receive Date: 20220916
  Receipt Date: 20220916
  Transmission Date: 20221026
  Serious: Yes (Death, Other)
  Sender: FDA-Public Use
  Company Number: US-BRISTOL-MYERS SQUIBB COMPANY-2022-107445

PATIENT
  Age: 81 Year
  Sex: Female

DRUGS (1)
  1. REVLIMID [Suspect]
     Active Substance: LENALIDOMIDE
     Indication: Follicular lymphoma
     Dosage: DOSE : UNAVAILABLE;     FREQ : 20 MG QD X 21 DAYS 7 DAYS OFF?21 DAYS OUT OF 28 DAYS CYCLE
     Route: 048
     Dates: start: 20220106

REACTIONS (1)
  - Death [Fatal]

NARRATIVE: CASE EVENT DATE: 20220901
